FAERS Safety Report 18755657 (Version 1)
Quarter: 2021Q1

REPORT INFORMATION
  Report Type: Spontaneous
  Country: US (occurrence: US)
  Receive Date: 20210115
  Receipt Date: 20210115
  Transmission Date: 20210419
  Serious: No
  Sender: FDA-Public Use
  Company Number: None

PATIENT
  Age: 56 Year
  Sex: Female
  Weight: 82.35 kg

DRUGS (15)
  1. METFORMIN 500MG [Concomitant]
     Active Substance: METFORMIN HYDROCHLORIDE
  2. FIORICET 50?300?40MG [Concomitant]
  3. ATIVAN 1MG [Concomitant]
  4. PRAMIPEXOLE DIHYDROCHLORIDE 1MG [Concomitant]
  5. CLINDAMYCIN. [Concomitant]
     Active Substance: CLINDAMYCIN
  6. HYDROCODONE?APAP 5?325MG [Concomitant]
  7. ZYRTEC [Concomitant]
     Active Substance: CETIRIZINE HYDROCHLORIDE
  8. FULVESTRANT. [Concomitant]
     Active Substance: FULVESTRANT
  9. VERZENIO [Suspect]
     Active Substance: ABEMACICLIB
     Indication: BREAST CANCER
     Route: 048
     Dates: start: 20200328, end: 20210115
  10. LYRICA [Concomitant]
     Active Substance: PREGABALIN
  11. LISINOPRIL?HCTZ 20?12.5MG [Concomitant]
     Active Substance: HYDROCHLOROTHIAZIDE\LISINOPRIL
  12. BENADRYL 25MG [Concomitant]
  13. PROMETHAZINE 25MG [Concomitant]
  14. ONDANSETRON 8MG [Concomitant]
     Active Substance: ONDANSETRON
  15. SEROQUEL XR 150MG [Concomitant]

REACTIONS (1)
  - Diarrhoea [None]

NARRATIVE: CASE EVENT DATE: 20210115
